FAERS Safety Report 18744028 (Version 2)
Quarter: 2021Q1

REPORT INFORMATION
  Report Type: Spontaneous
  Country: PL (occurrence: PL)
  Receive Date: 20210114
  Receipt Date: 20210211
  Transmission Date: 20210419
  Serious: Yes (Death, Hospitalization)
  Sender: FDA-Public Use
  Company Number: PL-JNJFOC-20201256516

PATIENT
  Age: 82 Year
  Sex: Male

DRUGS (1)
  1. RIVAROXABAN [Suspect]
     Active Substance: RIVAROXABAN
     Indication: ATRIAL FIBRILLATION
     Dosage: 20 MG, QD
     Route: 048

REACTIONS (2)
  - COVID-19 [Unknown]
  - Haemorrhage intracranial [Fatal]

NARRATIVE: CASE EVENT DATE: 20200507
